FAERS Safety Report 14222472 (Version 2)
Quarter: 2017Q4

REPORT INFORMATION
  Report Type: Spontaneous
  Country: JP (occurrence: JP)
  Receive Date: 20171124
  Receipt Date: 20171213
  Transmission Date: 20180321
  Serious: Yes (Hospitalization)
  Sender: FDA-Public Use
  Company Number: JP-ORION CORPORATION ORION PHARMA-ENTC2017-0519

PATIENT
  Age: 64 Year
  Sex: Male

DRUGS (8)
  1. STALEVO [Suspect]
     Active Substance: CARBIDOPA\ENTACAPONE\LEVODOPA
     Indication: PARKINSON^S DISEASE
     Dosage: STRENGTH: 100/10/100 MG; DIVIDED INTO 4 TIMES DAILY: MORNING, NOON, EVENING, BEDTIME
     Route: 048
     Dates: end: 201711
  2. NEUPRO [Suspect]
     Active Substance: ROTIGOTINE
     Indication: PARKINSON^S DISEASE
     Route: 062
  3. BI SIFROL [Suspect]
     Active Substance: PRAMIPEXOLE
     Route: 045
     Dates: start: 201711
  4. TRERIEF [Suspect]
     Active Substance: ZONISAMIDE
     Route: 045
     Dates: start: 201711
  5. FP [Suspect]
     Active Substance: SELEGILINE HYDROCHLORIDE
     Route: 045
     Dates: start: 201711
  6. FP [Suspect]
     Active Substance: SELEGILINE HYDROCHLORIDE
     Indication: PARKINSON^S DISEASE
     Route: 048
     Dates: end: 201711
  7. BI SIFROL [Suspect]
     Active Substance: PRAMIPEXOLE
     Indication: PARKINSON^S DISEASE
     Route: 048
     Dates: end: 201711
  8. TRERIEF [Suspect]
     Active Substance: ZONISAMIDE
     Indication: PARKINSON^S DISEASE
     Route: 048
     Dates: end: 201711

REACTIONS (2)
  - Musculoskeletal stiffness [Recovering/Resolving]
  - Pneumonia [Recovering/Resolving]

NARRATIVE: CASE EVENT DATE: 20171115
